FAERS Safety Report 17766809 (Version 1)
Quarter: 2020Q2

REPORT INFORMATION
  Report Type: Report from Study
  Country: CO (occurrence: CO)
  Receive Date: 20200511
  Receipt Date: 20200511
  Transmission Date: 20200714
  Serious: Yes (Other)
  Sender: FDA-Public Use
  Company Number: CO-ROCHE-2592276

PATIENT
  Age: 71 Year
  Sex: Female

DRUGS (5)
  1. DOXORUBICINE [DOXORUBICIN] [Concomitant]
     Active Substance: DOXORUBICIN
     Indication: DIFFUSE LARGE B-CELL LYMPHOMA
  2. RITUXIMAB. [Suspect]
     Active Substance: RITUXIMAB
     Indication: DIFFUSE LARGE B-CELL LYMPHOMA
     Route: 065
  3. VINCRISTINE [Concomitant]
     Active Substance: VINCRISTINE
     Indication: DIFFUSE LARGE B-CELL LYMPHOMA
  4. CYCLOPHOSPHAMIDE. [Concomitant]
     Active Substance: CYCLOPHOSPHAMIDE
     Indication: DIFFUSE LARGE B-CELL LYMPHOMA
  5. PREDNISOLONE. [Concomitant]
     Active Substance: PREDNISOLONE
     Indication: DIFFUSE LARGE B-CELL LYMPHOMA

REACTIONS (22)
  - Constipation [Unknown]
  - Polyuria [Unknown]
  - Intervertebral disc disorder [Unknown]
  - Vomiting [Unknown]
  - Feeling abnormal [Unknown]
  - Dysstasia [Unknown]
  - Emotional disorder [Unknown]
  - Peritonitis [Unknown]
  - Decreased appetite [Unknown]
  - Bone pain [Unknown]
  - Bone disorder [Unknown]
  - Neoplasm [Unknown]
  - Salivary hypersecretion [Unknown]
  - Crying [Unknown]
  - Pain in extremity [Unknown]
  - Arthropathy [Unknown]
  - Urinary tract infection [Unknown]
  - Ill-defined disorder [Unknown]
  - Chromaturia [Unknown]
  - Nausea [Unknown]
  - Abdominal pain upper [Unknown]
  - Decreased immune responsiveness [Unknown]
